FAERS Safety Report 7957259-3 (Version None)
Quarter: 2011Q4

REPORT INFORMATION
  Report Type: 
  Country: None (occurrence: None)
  Receive Date: 20111205
  Receipt Date: 20111129
  Transmission Date: 20120403
  Serious: Yes (Hospitalization)
  Sender: FDA-Public Use
  Company Number: BE-GLAXOSMITHKLINE-B0766964A

PATIENT
  Sex: Female

DRUGS (5)
  1. EUSAPRIM [Concomitant]
     Indication: ANTIBIOTIC PROPHYLAXIS
     Dosage: 800MG THREE TIMES PER WEEK
     Route: 048
     Dates: start: 20091124
  2. CHOP [Suspect]
     Indication: PRODUCT USED FOR UNKNOWN INDICATION
     Route: 065
  3. OFATUMUMAB [Suspect]
     Indication: PRODUCT USED FOR UNKNOWN INDICATION
     Route: 065
  4. VFEND [Concomitant]
     Indication: ANTIFUNGAL PROPHYLAXIS
     Dosage: 200MG PER DAY
     Route: 048
     Dates: start: 20100624
  5. ZOVIRAX [Concomitant]
     Indication: ANTIVIRAL PROPHYLAXIS
     Dosage: 1200MG PER DAY
     Route: 048
     Dates: start: 20091124

REACTIONS (1)
  - SEPSIS [None]
